FAERS Safety Report 14832599 (Version 1)
Quarter: 2018Q2

REPORT INFORMATION
  Report Type: Spontaneous
  Country: US (occurrence: US)
  Receive Date: 20180501
  Receipt Date: 20180501
  Transmission Date: 20180711
  Serious: No
  Sender: FDA-Public Use
  Company Number: US-BAYER-2018-083369

PATIENT
  Age: 2 Year
  Sex: Female

DRUGS (1)
  1. MIRALAX [Suspect]
     Active Substance: POLYETHYLENE GLYCOL 3350
     Indication: CONSTIPATION
     Dosage: 1/2 CAP TO FULL CAP , QD
     Dates: start: 201604, end: 20180419

REACTIONS (5)
  - Drug administered to patient of inappropriate age [None]
  - Flatulence [Unknown]
  - Poor quality sleep [Unknown]
  - Product use in unapproved indication [None]
  - Diarrhoea [Unknown]
